FAERS Safety Report 8345569-X (Version None)
Quarter: 2012Q2

REPORT INFORMATION
  Report Type: 
  Country: None (occurrence: None)
  Receive Date: 20120508
  Receipt Date: 20110816
  Transmission Date: 20120825
  Serious: No
  Sender: FDA-Public Use
  Company Number: US-BAUSCH-2011BL005432

PATIENT
  Age: 67 Year
  Sex: Female

DRUGS (8)
  1. CALCIUM [Concomitant]
  2. VITAMIN D [Concomitant]
  3. GLUCOSAMINE [Concomitant]
  4. ALREX [Suspect]
     Route: 047
     Dates: start: 20110816, end: 20110816
  5. SIMVASTATIN [Concomitant]
  6. ZOLPIDEM [Concomitant]
  7. ALREX [Suspect]
     Indication: HYPERSENSITIVITY
     Route: 047
     Dates: start: 20110701, end: 20110812
  8. TRIAMTERENE [Concomitant]

REACTIONS (4)
  - FOREIGN BODY SENSATION IN EYES [None]
  - EYE IRRITATION [None]
  - LACRIMATION INCREASED [None]
  - EYE SWELLING [None]
